FAERS Safety Report 4786722-1 (Version None)
Quarter: 2005Q3

REPORT INFORMATION
  Report Type: 
  Country: None (occurrence: None)
  Receive Date: 20050930
  Receipt Date: 20050921
  Transmission Date: 20060218
  Serious: Yes (Death)
  Sender: FDA-Public Use
  Company Number: HQWYE603022SEP05

PATIENT
  Age: 40 Year

DRUGS (3)
  1. EFFEXOR [Suspect]
     Dosage: ORAL
     Route: 048
     Dates: end: 20040101
  2. PROPOXYPHENE HCL AND ACETAMINOPHEN (DEXTROPROPOXYPHENE HYDROCHLORIDE/P [Suspect]
     Dosage: ORAL
     Route: 048
     Dates: end: 20040101
  3. ZONISAMIDE [Suspect]
     Dosage: ORAL
     Route: 048
     Dates: end: 20040101

REACTIONS (2)
  - ADVERSE DRUG REACTION [None]
  - OVERDOSE [None]
